FAERS Safety Report 16759642 (Version 1)
Quarter: 2019Q3

REPORT INFORMATION
  Report Type: Spontaneous
  Country: US (occurrence: US)
  Receive Date: 20190712
  Receipt Date: 20190712
  Transmission Date: 20191005
  Serious: Yes (Hospitalization)
  Sender: FDA-Public Use
  Company Number: None

PATIENT
  Sex: Male
  Weight: 75.3 kg

DRUGS (2)
  1. TAXOL [Concomitant]
     Active Substance: PACLITAXEL
  2. CARBOPLATIN. [Suspect]
     Active Substance: CARBOPLATIN

REACTIONS (6)
  - Failure to thrive [None]
  - Dysphagia [None]
  - Hypotension [None]
  - Pneumonia [None]
  - Dehydration [None]
  - Tachycardia [None]

NARRATIVE: CASE EVENT DATE: 20190703
